FAERS Safety Report 20220576 (Version 4)
Quarter: 2022Q1

REPORT INFORMATION
  Report Type: Report from Study
  Country: CA (occurrence: CA)
  Receive Date: 20211223
  Receipt Date: 20220316
  Transmission Date: 20220423
  Serious: Yes (Other)
  Sender: FDA-Public Use
  Company Number: CA-JNJFOC-20211140166

PATIENT
  Age: 2 Decade
  Sex: Male

DRUGS (3)
  1. REMICADE [Suspect]
     Active Substance: INFLIXIMAB
     Indication: Hidradenitis
     Dosage: 10 TH INFUSION ADVISED TO BREAK THE DOSE UP SO NOW GIVEN OVER THREE TIME PERIODS, FRIDAY MORNINGS, E
     Route: 042
     Dates: start: 20210204
  2. METHOTREXATE [Suspect]
     Active Substance: METHOTREXATE
     Indication: Product used for unknown indication
     Dosage: WEEKLY
     Route: 058
  3. SULFASALAZINE [Concomitant]
     Active Substance: SULFASALAZINE
     Indication: Product used for unknown indication
     Route: 065

REACTIONS (8)
  - Fungal infection [Unknown]
  - Blood iron decreased [Not Recovered/Not Resolved]
  - Malaise [Unknown]
  - Pallor [Unknown]
  - Anti-saccharomyces cerevisiae antibody [Not Recovered/Not Resolved]
  - Hidradenitis [Not Recovered/Not Resolved]
  - Drug level decreased [Unknown]
  - Drug ineffective [Unknown]

NARRATIVE: CASE EVENT DATE: 20210101
